FAERS Safety Report 6425412-6 (Version None)
Quarter: 2009Q4

REPORT INFORMATION
  Report Type: 
  Country: None (occurrence: None)
  Receive Date: 20091103
  Receipt Date: 20091026
  Transmission Date: 20100525
  Serious: Yes (Other)
  Sender: FDA-Public Use
  Company Number: US-WYE-H11818209

PATIENT
  Sex: Female

DRUGS (2)
  1. ADVIL [Suspect]
     Dosage: UNKNOWN
     Route: 048
  2. ALEVE [Suspect]
     Dosage: UNKNOWN
     Route: 048

REACTIONS (6)
  - DYSPNOEA [None]
  - HYPERSENSITIVITY [None]
  - LIP DISORDER [None]
  - ORAL DISORDER [None]
  - PHARYNGEAL OEDEMA [None]
  - SWELLING FACE [None]
